FAERS Safety Report 5388820-0 (Version None)
Quarter: 2007Q3

REPORT INFORMATION
  Report Type: 
  Country: None (occurrence: None)
  Receive Date: 20070712
  Receipt Date: 20070703
  Transmission Date: 20080115
  Serious: Yes (Death)
  Sender: FDA-Public Use
  Company Number: 2007S1005207

PATIENT
  Age: 57 Year
  Sex: Male

DRUGS (4)
  1. FENTANYL TRANSDERMAL SYSTEM [Suspect]
     Indication: PAIN
     Dosage: 100 UG/HR; EVERY 3 DAYS; TRANSDERMAL
     Route: 062
     Dates: start: 20060901, end: 20061201
  2. FENTANYL TRANSDERMAL SYSTEM [Suspect]
     Indication: PANCREATIC CARCINOMA
     Dosage: 100 UG/HR; EVERY 3 DAYS; TRANSDERMAL
     Route: 062
     Dates: start: 20060901, end: 20061201
  3. ADVIL /00109201/ (CON.) [Concomitant]
  4. TYLENOL EXTRA STRENGTH (CON.) [Concomitant]

REACTIONS (4)
  - CONDITION AGGRAVATED [None]
  - DRUG INEFFECTIVE [None]
  - INADEQUATE ANALGESIA [None]
  - PANCREATIC CARCINOMA [None]
